FAERS Safety Report 5139532-X (Version None)
Quarter: 2006Q4

REPORT INFORMATION
  Report Type: 
  Country: None (occurrence: None)
  Receive Date: 20061024
  Receipt Date: 20061011
  Transmission Date: 20070319
  Serious: Yes (Hospitalization)
  Sender: FDA-Public Use
  Company Number: 2006124947

PATIENT
  Age: 64 Year
  Sex: Female

DRUGS (10)
  1. SUTENT [Suspect]
     Indication: GASTROINTESTINAL STROMAL TUMOUR
     Dosage: (50 MG, 1 IN 1 D), ORAL
     Route: 048
     Dates: start: 20060614
  2. MEDROXYPROGESTERONE ACETATE [Concomitant]
  3. FUROSEMIDE [Concomitant]
  4. MULTIVITAMINS WITH MINERALS (MULTIVITAMINS WITH MINERALS) [Concomitant]
  5. DIMETICONE (DIMETICONE) [Concomitant]
  6. METOCLOPRAMIDE [Concomitant]
  7. DOMPERISONE (DOMPERISONE) [Concomitant]
  8. SPIRONOLACTONE [Concomitant]
  9. SLOW-K [Concomitant]
  10. ACETAMINOPHEN [Suspect]

REACTIONS (1)
  - JAUNDICE [None]
